FAERS Safety Report 6751164-6 (Version None)
Quarter: 2010Q2

REPORT INFORMATION
  Report Type: 
  Country: None (occurrence: None)
  Receive Date: 20100602
  Receipt Date: 20100527
  Transmission Date: 20101027
  Serious: Yes (Hospitalization)
  Sender: FDA-Public Use
  Company Number: FR-BRISTOL-MYERS SQUIBB COMPANY-15124829

PATIENT
  Age: 66 Year
  Sex: Female

DRUGS (8)
  1. ABILIFY [Suspect]
     Indication: MOOD ALTERED
     Route: 048
     Dates: start: 20100506
  2. ABILIFY [Suspect]
     Indication: DEPRESSION
     Route: 048
     Dates: start: 20100506
  3. NOCTRAN [Suspect]
     Indication: INSOMNIA
     Dosage: 1 DF = HALF A TABLET
     Route: 048
     Dates: start: 20100507, end: 20100517
  4. RIVOTRIL [Suspect]
     Dosage: 3 DROPS IN THE MORNING, 3 DROPS AT MIDDAY AND 5 DROPS IN THE EVENING
     Route: 048
     Dates: start: 20100507
  5. ZYPREXA [Concomitant]
     Dosage: 1 TABLET IN THE EVENING
     Route: 048
  6. TEGRETOL-XR [Concomitant]
     Dosage: HALF A TABLET IN THE MORNING AND HALF A TABLET IN THE EVENING
     Route: 048
     Dates: end: 20100507
  7. VALIUM [Concomitant]
     Route: 048
     Dates: end: 20100507
  8. SEROPLEX [Concomitant]
     Route: 048
     Dates: end: 20100507

REACTIONS (1)
  - MANIA [None]
